FAERS Safety Report 12459659 (Version 1)
Quarter: 2016Q2

REPORT INFORMATION
  Report Type: Spontaneous
  Country: US (occurrence: US)
  Receive Date: 20160613
  Receipt Date: 20160613
  Transmission Date: 20160815
  Serious: No
  Sender: FDA-Public Use
  Company Number: US-TEVA-667596USA

PATIENT
  Sex: Female
  Weight: 105.78 kg

DRUGS (24)
  1. PERPHENAZINE. [Concomitant]
     Active Substance: PERPHENAZINE
  2. CLONAZEPAM. [Concomitant]
     Active Substance: CLONAZEPAM
  3. VITAMIN D3 [Concomitant]
     Active Substance: CHOLECALCIFEROL
  4. BIOTIN [Concomitant]
     Active Substance: BIOTIN
  5. OMEGA 3 FISH OIL [Concomitant]
     Active Substance: FISH OIL\OMEGA-3 FATTY ACIDS
  6. ZINC [Concomitant]
     Active Substance: ZINC\ZINC CHLORIDE
  7. MULTIVITAMIN [Concomitant]
     Active Substance: VITAMINS
  8. VITAMIN E [Concomitant]
     Active Substance: .ALPHA.-TOCOPHEROL
  9. METHOCARBAMOL. [Concomitant]
     Active Substance: METHOCARBAMOL
  10. HYDROXYZINE PAMOATE. [Concomitant]
     Active Substance: HYDROXYZINE PAMOATE
  11. VITAMIN C [Concomitant]
     Active Substance: ASCORBIC ACID
  12. PRISTIQ EXTENDED-RELEASE [Concomitant]
     Active Substance: DESVENLAFAXINE SUCCINATE
  13. PROPRANOLOL ER [Concomitant]
  14. IRON [Concomitant]
     Active Substance: IRON
  15. VITAMIN B [Concomitant]
     Active Substance: VITAMIN B
  16. CRANBERRY SUPPLEMENT [Concomitant]
  17. SYNRIBO [Suspect]
     Active Substance: OMACETAXINE MEPESUCCINATE
     Indication: CHRONIC MYELOID LEUKAEMIA
     Dosage: 2.4 MILLIGRAM DAILY; HOME ADMINISTRATION
     Dates: start: 20160517
  18. VITAMIN B12 [Concomitant]
     Active Substance: CYANOCOBALAMIN
  19. BETA CAROTENE [Concomitant]
  20. CALCIUM [Concomitant]
     Active Substance: CALCIUM
  21. PROBIOTIC [Concomitant]
     Active Substance: PROBIOTICS NOS
  22. GLUCOSAMINE AND CHONDROITIN [Concomitant]
     Active Substance: CHONDROITIN SULFATE (BOVINE)\GLUCOSAMINE HYDROCHLORIDE
  23. IMIPRAMINE [Concomitant]
     Active Substance: IMIPRAMINE
  24. MELATONIN [Concomitant]
     Active Substance: MELATONIN

REACTIONS (1)
  - Hepatic enzyme increased [Unknown]

NARRATIVE: CASE EVENT DATE: 2016
